FAERS Safety Report 6491663-8 (Version None)
Quarter: 2009Q4

REPORT INFORMATION
  Report Type: 
  Country: None (occurrence: None)
  Receive Date: 20091211
  Receipt Date: 20091204
  Transmission Date: 20100525
  Serious: Yes (Life-Threatening)
  Sender: FDA-Public Use
  Company Number: JP-MERCK-0912USA01159

PATIENT
  Age: 84 Year
  Sex: Female

DRUGS (6)
  1. JANUVIA [Suspect]
     Indication: HYPERGLYCAEMIA
     Route: 048
     Dates: start: 20091111, end: 20091127
  2. AMARYL [Concomitant]
     Indication: HYPERGLYCAEMIA
     Dosage: 3 MG IN MORNING AND 1 MG AT NIGHT
     Route: 048
     Dates: start: 20091013
  3. AMARYL [Concomitant]
     Dosage: 3 MG IN MORNING AND 1 MG AT NIGHT
     Route: 048
     Dates: start: 20091013
  4. BASEN [Concomitant]
     Indication: HYPERGLYCAEMIA
     Route: 048
     Dates: start: 20091013
  5. DIOVAN [Concomitant]
     Indication: HYPERTENSION
     Route: 048
     Dates: start: 20090420
  6. ARICEPT [Concomitant]
     Indication: DEMENTIA
     Route: 048
     Dates: start: 20090410

REACTIONS (1)
  - HYPOGLYCAEMIA [None]
